FAERS Safety Report 10169095 (Version 1)
Quarter: 2014Q2

REPORT INFORMATION
  Report Type: Spontaneous
  Country: US (occurrence: US)
  Receive Date: 20140513
  Receipt Date: 20140513
  Transmission Date: 20141212
  Serious: No
  Sender: FDA-Public Use
  Company Number: US-009507513-1405USA004728

PATIENT
  Age: 42 Year
  Sex: Female

DRUGS (1)
  1. NASONEX [Suspect]
     Dosage: ONE SPRAY IN EACH NOSTRIL DAILY
     Route: 045

REACTIONS (3)
  - Dysgeusia [Recovered/Resolved]
  - Dysgeusia [Recovered/Resolved]
  - Drug dose omission [Unknown]
